FAERS Safety Report 6365887-4 (Version None)
Quarter: 2009Q3

REPORT INFORMATION
  Report Type: 
  Country: None (occurrence: None)
  Receive Date: 20090919
  Receipt Date: 20090824
  Transmission Date: 20100115
  Serious: No
  Sender: FDA-Public Use
  Company Number: US-ABBOTT-09P-163-0593256-00

PATIENT
  Sex: Male
  Weight: 99.88 kg

DRUGS (5)
  1. HUMIRA [Suspect]
     Indication: PSORIASIS
     Route: 058
     Dates: start: 20090801
  2. HUMIRA [Suspect]
     Dosage: INITIAL DOSE
     Route: 058
     Dates: start: 20090821, end: 20090821
  3. PANTOPRAZOLE SODIUM [Concomitant]
     Indication: GASTROOESOPHAGEAL REFLUX DISEASE
  4. PAROXETINE HCL [Concomitant]
     Indication: RELAXATION THERAPY
  5. PAROXETINE HCL [Concomitant]
     Indication: ANXIOLYTIC THERAPY

REACTIONS (1)
  - DRUG DOSE OMISSION [None]
